FAERS Safety Report 21023095 (Version 1)
Quarter: 2022Q2

REPORT INFORMATION
  Report Type: Spontaneous
  Country: US (occurrence: None)
  Receive Date: 20220629
  Receipt Date: 20220629
  Transmission Date: 20220721
  Serious: Yes (Death, Hospitalization, Other)
  Sender: FDA-Public Use
  Company Number: None

PATIENT
  Age: 61 Year
  Sex: Female
  Weight: 54 kg

DRUGS (2)
  1. ZOLEDRONIC ACID [Suspect]
     Active Substance: ZOLEDRONIC ACID
     Indication: Breast cancer stage IV
     Dates: start: 20201230, end: 20220405
  2. ZOLEDRONIC ACID [Suspect]
     Active Substance: ZOLEDRONIC ACID
     Indication: Metastases to bone

REACTIONS (6)
  - Gingival pain [None]
  - Neck pain [None]
  - Oral mucosal roughening [None]
  - Exposed bone in jaw [None]
  - Submandibular abscess [None]
  - Osteonecrosis [None]

NARRATIVE: CASE EVENT DATE: 20220405
